FAERS Safety Report 13644743 (Version 1)
Quarter: 2017Q2

REPORT INFORMATION
  Report Type: Spontaneous
  Country: US (occurrence: US)
  Receive Date: 20170612
  Receipt Date: 20170612
  Transmission Date: 20170830
  Serious: No
  Sender: FDA-Public Use
  Company Number: US-ROCHE-1338397

PATIENT
  Age: 60 Year
  Sex: Female

DRUGS (4)
  1. XELODA [Suspect]
     Active Substance: CAPECITABINE
     Dosage: DOSE DECREASED TO 500MG TAKE AT 2 AM AND 3 PM
     Route: 048
  2. XELODA [Suspect]
     Active Substance: CAPECITABINE
     Route: 048
     Dates: start: 20140307
  3. XELODA [Suspect]
     Active Substance: CAPECITABINE
     Indication: NEOPLASM MALIGNANT
     Dosage: 3 TABS ?14 DAYS ON, 7 DAYS OFF
     Route: 048
     Dates: start: 20131227, end: 20140624
  4. AFINITOR [Concomitant]
     Active Substance: EVEROLIMUS
     Route: 048
     Dates: start: 20140624

REACTIONS (10)
  - Neuropathy peripheral [Unknown]
  - Rash [Not Recovered/Not Resolved]
  - Blister [Not Recovered/Not Resolved]
  - Abdominal discomfort [Unknown]
  - Dry skin [Unknown]
  - Blister [Not Recovered/Not Resolved]
  - Fatigue [Unknown]
  - Diarrhoea [Unknown]
  - Abdominal pain upper [Unknown]
  - Eye pruritus [Unknown]

NARRATIVE: CASE EVENT DATE: 20140121
